FAERS Safety Report 7686854-4 (Version None)
Quarter: 2011Q3

REPORT INFORMATION
  Report Type: 
  Country: None (occurrence: None)
  Receive Date: 20110816
  Receipt Date: 20110801
  Transmission Date: 20111222
  Serious: Yes (Hospitalization)
  Sender: FDA-Public Use
  Company Number: IE-WATSON-2011-12717

PATIENT
  Age: 42 Year
  Sex: Female

DRUGS (2)
  1. LABETALOL HCL [Suspect]
     Indication: PRE-ECLAMPSIA
     Dosage: 100 MG, TID
     Route: 048
  2. LABETALOL HCL [Suspect]
     Dosage: 160 MG, Q1H
     Route: 042

REACTIONS (3)
  - HYPOGLYCAEMIA [None]
  - NAUSEA [None]
  - HYPERHIDROSIS [None]
